FAERS Safety Report 12400792 (Version 2)
Quarter: 2016Q2

REPORT INFORMATION
  Report Type: Spontaneous
  Country: US (occurrence: US)
  Receive Date: 20160525
  Receipt Date: 20160525
  Transmission Date: 20160815
  Serious: No
  Sender: FDA-Public Use
  Company Number: US-SA-2015SA123342

PATIENT
  Sex: Female

DRUGS (2)
  1. SOLOSTAR [Concomitant]
     Active Substance: DEVICE
     Dates: start: 2012
  2. LANTUS SOLOSTAR [Suspect]
     Active Substance: INSULIN GLARGINE
     Indication: TYPE 2 DIABETES MELLITUS
     Dosage: DOSE:20 UNIT(S)
     Route: 065
     Dates: start: 2012

REACTIONS (6)
  - Lower limb fracture [Unknown]
  - Unevaluable event [Unknown]
  - Thyroid disorder [Unknown]
  - Cardiac murmur [Unknown]
  - Ill-defined disorder [Unknown]
  - Eye disorder [Not Recovered/Not Resolved]
